FAERS Safety Report 17730523 (Version 3)
Quarter: 2020Q2

REPORT INFORMATION
  Report Type: Spontaneous
  Country: US (occurrence: US)
  Receive Date: 20200430
  Receipt Date: 20200612
  Transmission Date: 20200714
  Serious: Yes (Hospitalization)
  Sender: FDA-Public Use
  Company Number: US-SHIRE-US202014911

PATIENT
  Age: 73 Year
  Sex: Female

DRUGS (2)
  1. GATTEX [Suspect]
     Active Substance: TEDUGLUTIDE\WATER
     Indication: SHORT-BOWEL SYNDROME
     Dosage: 1.4 MILLIGRAM, 1X/DAY:QD
     Route: 058
     Dates: start: 20180524
  2. GATTEX [Suspect]
     Active Substance: TEDUGLUTIDE\WATER
     Dosage: 0.28 UNK, 1X/DAY:QD
     Route: 058
     Dates: start: 20180419

REACTIONS (6)
  - Gastrointestinal stoma output abnormal [Unknown]
  - Liver function test increased [Unknown]
  - Faecal volume increased [Not Recovered/Not Resolved]
  - Post procedural complication [Unknown]
  - Faeces soft [Not Recovered/Not Resolved]
  - Abdominal pain [Not Recovered/Not Resolved]

NARRATIVE: CASE EVENT DATE: 20200517
